FAERS Safety Report 11794992 (Version 4)
Quarter: 2019Q1

REPORT INFORMATION
  Report Type: Spontaneous
  Country: US (occurrence: US)
  Receive Date: 20151202
  Receipt Date: 20190320
  Transmission Date: 20190417
  Serious: Yes (Hospitalization, Other)
  Sender: FDA-Public Use
  Company Number: US-DSJP-DSU-2015-132132

PATIENT
  Age: 72 Year
  Sex: Male
  Weight: 91.61 kg

DRUGS (1)
  1. TRIBENZOR [Suspect]
     Active Substance: AMLODIPINE BESYLATE\HYDROCHLOROTHIAZIDE\OLMESARTAN MEDOXOMIL
     Indication: HYPERTENSION
     Dosage: 40/5/25 MG, QD
     Dates: start: 20120208, end: 201408

REACTIONS (13)
  - Sprue-like enteropathy [Recovering/Resolving]
  - Anxiety [Not Recovered/Not Resolved]
  - Diverticulum [Unknown]
  - Pancreatitis chronic [Recovering/Resolving]
  - Acute kidney injury [Recovered/Resolved]
  - Large intestine polyp [Unknown]
  - Platelet count decreased [Recovered/Resolved]
  - Red blood cell count decreased [Not Recovered/Not Resolved]
  - Depression [Not Recovered/Not Resolved]
  - Hypovitaminosis [Recovered/Resolved]
  - Muscular weakness [Recovered/Resolved]
  - Hypotension [Unknown]
  - Gastritis erosive [Unknown]

NARRATIVE: CASE EVENT DATE: 201401
